FAERS Safety Report 24398524 (Version 2)
Quarter: 2024Q4

REPORT INFORMATION
  Report Type: Report from Study
  Country: BR (occurrence: BR)
  Receive Date: 20241004
  Receipt Date: 20241014
  Transmission Date: 20250115
  Serious: Yes (Other)
  Sender: JOHNSON AND JOHNSON
  Company Number: BR-JNJFOC-20240977520

PATIENT
  Age: 16 Year
  Sex: Male
  Weight: 66 kg

DRUGS (3)
  1. INFLIXIMAB [Suspect]
     Active Substance: INFLIXIMAB
     Indication: Crohn^s disease
     Route: 041
     Dates: start: 20220304
  2. REMICADE [Suspect]
     Active Substance: INFLIXIMAB
     Indication: Crohn^s disease
     Route: 041
     Dates: start: 20220304
  3. INFLIXIMAB [Suspect]
     Active Substance: INFLIXIMAB
     Indication: Crohn^s disease
     Route: 065

REACTIONS (11)
  - Cachexia [Unknown]
  - Crohn^s disease [Not Recovered/Not Resolved]
  - Abscess intestinal [Unknown]
  - Malnutrition [Unknown]
  - Anal fistula [Unknown]
  - Immune system disorder [Unknown]
  - Drug level abnormal [Unknown]
  - Drug specific antibody [Unknown]
  - Therapeutic response decreased [Unknown]
  - Impaired quality of life [Unknown]
  - Off label use [Unknown]

NARRATIVE: CASE EVENT DATE: 20231101
